FAERS Safety Report 9140675 (Version 2)
Quarter: 2013Q3

REPORT INFORMATION
  Report Type: Spontaneous
  Country: FR (occurrence: FR)
  Receive Date: 20130305
  Receipt Date: 20130723
  Transmission Date: 20140515
  Serious: Yes (Hospitalization)
  Sender: FDA-Public Use
  Company Number: FR-GLAXOSMITHKLINE-B0870251A

PATIENT
  Age: 56 Year
  Sex: Male

DRUGS (17)
  1. CLAVENTIN [Suspect]
     Indication: DIABETIC FOOT
     Dosage: 9G PER DAY
     Route: 042
     Dates: start: 20121220, end: 20121228
  2. CLAVENTIN [Suspect]
     Indication: DIABETIC FOOT
     Dosage: 15G PER DAY
     Route: 042
     Dates: start: 20130110, end: 20130126
  3. AMOXICILLIN SODIUM [Suspect]
     Indication: DIABETIC FOOT
     Dosage: 15G PER DAY
     Route: 042
     Dates: start: 20130126
  4. CALCIPARINE [Concomitant]
     Route: 065
  5. HUMALOG [Concomitant]
     Route: 065
  6. FUROSEMIDE [Concomitant]
     Route: 065
  7. AMLODIPINE [Concomitant]
     Route: 065
  8. FOLIC ACID [Concomitant]
     Route: 065
  9. ESOMEPRAZOLE [Concomitant]
     Route: 065
  10. KAYEXALATE [Concomitant]
     Route: 065
  11. LACTULOSE [Concomitant]
     Route: 065
  12. VITAMIN PP [Concomitant]
     Route: 065
  13. PARACETAMOL [Concomitant]
     Route: 065
  14. TRAMADOL [Concomitant]
     Route: 065
  15. URAPIDIL [Concomitant]
     Route: 065
  16. VALSARTAN [Concomitant]
     Route: 065
  17. VITAMIN B1 B6 [Concomitant]
     Route: 065

REACTIONS (5)
  - Hepatitis [Recovering/Resolving]
  - Hepatocellular injury [Recovering/Resolving]
  - Cholestasis [Recovering/Resolving]
  - Blood bilirubin increased [Recovered/Resolved]
  - Cholelithiasis [Unknown]
